FAERS Safety Report 25179650 (Version 1)
Quarter: 2025Q2

REPORT INFORMATION
  Report Type: Spontaneous
  Country: CN (occurrence: CN)
  Receive Date: 20250409
  Receipt Date: 20250409
  Transmission Date: 20250716
  Serious: Yes (Hospitalization)
  Sender: BAYER
  Company Number: CN-BAYER-2025A047204

PATIENT
  Age: 46 Year
  Sex: Female
  Weight: 52 kg

DRUGS (4)
  1. STIVARGA [Suspect]
     Active Substance: REGORAFENIB MONOHYDRATE
     Indication: Neoplasm malignant
     Dosage: 160 MG, QD, 1 CYCLE
     Route: 048
     Dates: start: 20250123, end: 20250212
  2. STIVARGA [Suspect]
     Active Substance: REGORAFENIB MONOHYDRATE
     Indication: Targeted cancer therapy
  3. CAMRELIZUMAB [Suspect]
     Active Substance: CAMRELIZUMAB
     Indication: Neoplasm malignant
     Dosage: 200 MG, Q2WK, 1 CYCLE
     Route: 041
     Dates: start: 20250123, end: 20250123
  4. CAMRELIZUMAB [Suspect]
     Active Substance: CAMRELIZUMAB
     Indication: Immunomodulatory therapy

REACTIONS (2)
  - Myelosuppression [Recovering/Resolving]
  - Pyrexia [None]

NARRATIVE: CASE EVENT DATE: 20250101
